APPROVED DRUG PRODUCT: METHYLPREDNISOLONE ACETATE
Active Ingredient: METHYLPREDNISOLONE ACETATE
Strength: 80MG/ML
Dosage Form/Route: INJECTABLE;INJECTION
Application: A214870 | Product #001 | TE Code: AB
Applicant: WILSHIRE PHARMACEUTICALS INC
Approved: Jan 3, 2023 | RLD: No | RS: No | Type: RX